FAERS Safety Report 22651851 (Version 1)
Quarter: 2023Q2

REPORT INFORMATION
  Report Type: Spontaneous
  Country: US (occurrence: US)
  Receive Date: 20230628
  Receipt Date: 20230628
  Transmission Date: 20230722
  Serious: No
  Sender: FDA-Public Use
  Company Number: US-CTI BIOPHARMA-2023US03663

PATIENT

DRUGS (10)
  1. VONJO [Suspect]
     Active Substance: PACRITINIB
     Indication: Myelofibrosis
     Dosage: 200 MG, BID
     Dates: start: 20230427
  2. ACETAMINOPHEN [Concomitant]
     Active Substance: ACETAMINOPHEN
  3. BACITRACIN [Concomitant]
     Active Substance: BACITRACIN
  4. DOCUSATE;SENNA ALEXANDRINA [Concomitant]
  5. GABAPENTIN [Concomitant]
     Active Substance: GABAPENTIN
  6. MELATONIN [Concomitant]
     Active Substance: MELATONIN
  7. METOPROLOL SUCCINATE [Concomitant]
     Active Substance: METOPROLOL SUCCINATE
  8. OXYCODONE [Concomitant]
     Active Substance: OXYCODONE
  9. FERROUS SULFATE [Concomitant]
     Active Substance: FERROUS SULFATE
  10. OMEPRAZOLE [Concomitant]
     Active Substance: OMEPRAZOLE

REACTIONS (1)
  - Nausea [Recovering/Resolving]
